FAERS Safety Report 10214850 (Version 2)
Quarter: 2014Q2

REPORT INFORMATION
  Report Type: Report from Study
  Country: NL (occurrence: NL)
  Receive Date: 20140603
  Receipt Date: 20140603
  Transmission Date: 20141212
  Serious: Yes (Other)
  Sender: FDA-Public Use
  Company Number: NL-ABBVIE-13P-114-1074482-00

PATIENT
  Age: 49 Year
  Sex: Female
  Weight: 71 kg

DRUGS (6)
  1. LUCRIN [Suspect]
     Indication: BREAST CANCER FEMALE
     Route: 058
     Dates: start: 20130110
  2. AZATHIOPRINE [Concomitant]
     Indication: COLITIS ULCERATIVE
     Dosage: FOR YEARS
     Route: 048
  3. CALCIUMCARBONAAT/COLECALCIFEROL KAUWTA [Concomitant]
     Indication: OSTEOPOROSIS PROPHYLAXIS
     Dosage: 1.25G/400IE; ONCE DAILY
     Route: 048
  4. DENOSUMAB INJVIST [Concomitant]
     Indication: OSTEOPOROSIS PROPHYLAXIS
     Dosage: 70MG/ML FL 1.7ML, ONCE MONTHLY
     Route: 058
  5. EXEMESTAAN OMHULD [Concomitant]
     Indication: BREAST CANCER FEMALE
     Route: 048
  6. OXYCODON MGA [Concomitant]
     Indication: PAIN
     Route: 048

REACTIONS (6)
  - Anaemia [Unknown]
  - Hot flush [Recovering/Resolving]
  - Palpitations [Recovered/Resolved]
  - Paraesthesia [Recovered/Resolved]
  - Arthralgia [Recovered/Resolved]
  - Weight increased [Recovered/Resolved]
